FAERS Safety Report 10056572 (Version 1)
Quarter: 2014Q2

REPORT INFORMATION
  Report Type: Spontaneous
  Country: US (occurrence: None)
  Receive Date: 20140401
  Receipt Date: 20140401
  Transmission Date: 20141212
  Serious: Yes (Other)
  Sender: FDA-Public Use
  Company Number: 2014-US-003788

PATIENT
  Age: 76 Year
  Sex: Female

DRUGS (4)
  1. XYREM (SODIUM OXYBATE) ORAL SOLUTION, 500 MG/ML [Suspect]
     Indication: CATAPLEXY
     Route: 048
  2. VENLAFAXINE (VENLAFAXINE HYDROCHLORIDE) (UNKNOWN) (VENLAFAXINE HYDROCHLORIDE) [Suspect]
     Indication: CATAPLEXY
  3. FLUOXETINE (FLUOXETINE HYDROCHLORIDE) [Suspect]
     Indication: PRODUCT USED FOR UNKNOWN INDICATION
  4. LISINOPRIL (LISINOPRIL) [Concomitant]

REACTIONS (10)
  - Gastroenteritis [None]
  - Malabsorption [None]
  - Drug ineffective [None]
  - Cataplexy [None]
  - Vomiting [None]
  - Hallucination [None]
  - Hypertension [None]
  - Somnambulism [None]
  - Sleep-related eating disorder [None]
  - Fall [None]
